FAERS Safety Report 17534769 (Version 1)
Quarter: 2020Q1

REPORT INFORMATION
  Report Type: Spontaneous
  Country: GB (occurrence: GB)
  Receive Date: 20200312
  Receipt Date: 20200312
  Transmission Date: 20200409
  Serious: Yes (Other)
  Sender: FDA-Public Use
  Company Number: GB-PURDUE PHARMA-GBR-2020-0075537

PATIENT
  Age: 32 Year
  Sex: Female

DRUGS (1)
  1. BUTEC [Suspect]
     Active Substance: BUPRENORPHINE
     Indication: PAIN
     Dosage: 5 MCG, Q24H
     Route: 003
     Dates: start: 20191121, end: 20200130

REACTIONS (2)
  - Skin irritation [Unknown]
  - Chest pain [Recovered/Resolved with Sequelae]

NARRATIVE: CASE EVENT DATE: 20200125
